APPROVED DRUG PRODUCT: VANOBID
Active Ingredient: CANDICIDIN
Strength: 3MG
Dosage Form/Route: TABLET;VAGINAL
Application: A061613 | Product #001
Applicant: SANOFI AVENTIS US LLC
Approved: Approved Prior to Jan 1, 1982 | RLD: No | RS: No | Type: DISCN